FAERS Safety Report 5857448-8 (Version None)
Quarter: 2008Q3

REPORT INFORMATION
  Report Type: 
  Country: None (occurrence: None)
  Receive Date: 20080825
  Receipt Date: 20080825
  Transmission Date: 20090109
  Serious: Yes (Hospitalization, Other)
  Sender: FDA-Public Use
  Company Number: None

PATIENT
  Sex: Male
  Weight: 73.4 kg

DRUGS (3)
  1. ONCASPAR [Suspect]
     Indication: ACUTE LYMPHOCYTIC LEUKAEMIA
     Dosage: 4800 UNITS 2 MONTHS APART IM
     Route: 030
     Dates: start: 20080505, end: 20080805
  2. ONCASPAR [Suspect]
  3. ONCASPAR [Suspect]

REACTIONS (1)
  - ANAPHYLACTIC REACTION [None]
